FAERS Safety Report 4728454-1 (Version None)
Quarter: 2005Q3

REPORT INFORMATION
  Report Type: 
  Country: None (occurrence: None)
  Receive Date: 20050727
  Receipt Date: 20050712
  Transmission Date: 20060218
  Serious: Yes (Other)
  Sender: FDA-Public Use
  Company Number: 172384

PATIENT
  Sex: Female
  Weight: 90.7194 kg

DRUGS (1)
  1. AVONEX [Suspect]
     Indication: MULTIPLE SCLEROSIS
     Dosage: IM
     Route: 030

REACTIONS (9)
  - BALANCE DISORDER [None]
  - BREAST MASS [None]
  - CARDIAC MURMUR [None]
  - CORONARY ARTERY OCCLUSION [None]
  - DEPRESSION [None]
  - FALL [None]
  - FEELING ABNORMAL [None]
  - HEPATITIS C [None]
  - LIMB INJURY [None]
